FAERS Safety Report 5335608-2 (Version None)
Quarter: 2007Q2

REPORT INFORMATION
  Report Type: 
  Country: None (occurrence: None)
  Receive Date: 20070522
  Receipt Date: 20070508
  Transmission Date: 20071010
  Serious: Yes (Hospitalization, Other)
  Sender: FDA-Public Use
  Company Number: 2007BI005951

PATIENT
  Age: 45 Year
  Sex: Male
  Weight: 89.8122 kg

DRUGS (3)
  1. NATALIZUMAB [Suspect]
     Indication: MULTIPLE SCLEROSIS
     Dosage: 300 MG;QM;IV
     Route: 042
     Dates: start: 20061106, end: 20070226
  2. ASPIRIN [Concomitant]
  3. ALLEGRA [Concomitant]

REACTIONS (10)
  - ABDOMINAL STRANGULATED HERNIA [None]
  - B-CELL LYMPHOMA [None]
  - LYMPHOCYTE PERCENTAGE DECREASED [None]
  - MONOCYTE PERCENTAGE DECREASED [None]
  - NEUTROPHIL PERCENTAGE INCREASED [None]
  - NON-HODGKIN'S LYMPHOMA STAGE III [None]
  - PLATELET COUNT DECREASED [None]
  - TREMOR [None]
  - UMBILICAL HERNIA [None]
  - WHITE BLOOD CELL COUNT DECREASED [None]
